FAERS Safety Report 18111580 (Version 1)
Quarter: 2020Q3

REPORT INFORMATION
  Report Type: Spontaneous
  Country: DE (occurrence: DE)
  Receive Date: 20200804
  Receipt Date: 20200804
  Transmission Date: 20201103
  Serious: Yes (Hospitalization, Other)
  Sender: FDA-Public Use
  Company Number: NVSC2020DE217017

PATIENT
  Sex: Female
  Weight: .6 kg

DRUGS (9)
  1. HYDROCHLOROTHIAZIDE. [Suspect]
     Active Substance: HYDROCHLOROTHIAZIDE
     Indication: FOETAL EXPOSURE DURING PREGNANCY
     Dosage: 25 MG, QD (12.5 MG BID)
     Route: 064
  2. HYDRALAZINE [Suspect]
     Active Substance: HYDRALAZINE HYDROCHLORIDE
     Indication: FOETAL EXPOSURE DURING PREGNANCY
     Dosage: UNK
     Route: 064
  3. URAPIDIL [Suspect]
     Active Substance: URAPIDIL
     Indication: FOETAL EXPOSURE DURING PREGNANCY
     Dosage: UNK
     Route: 064
  4. METOPROLOL. [Suspect]
     Active Substance: METOPROLOL
     Indication: FOETAL EXPOSURE DURING PREGNANCY
     Dosage: 190 MG, QD(95 MG TWO TIMES DAILY (BID)
     Route: 064
  5. HYDRALAZINE [Suspect]
     Active Substance: HYDRALAZINE HYDROCHLORIDE
     Dosage: 75 MG, QD (25 MILLIGRAMS (MG) THREE TIMES DAILY (TID) ON ADMISSION )
     Route: 064
  6. METHYLDOPA. [Suspect]
     Active Substance: METHYLDOPA
     Indication: FOETAL EXPOSURE DURING PREGNANCY
     Dosage: 2000 MG, QD (MAXIMIZED)
     Route: 064
  7. SPIRONOLACTONE. [Suspect]
     Active Substance: SPIRONOLACTONE
     Indication: FOETAL EXPOSURE DURING PREGNANCY
     Dosage: 200 MG, QD (100 MG BID AT 25 0/7 WEEKS)
     Route: 064
  8. METYRAPONE [Suspect]
     Active Substance: METYRAPONE
     Indication: FOETAL EXPOSURE DURING PREGNANCY
     Dosage: 2.5 G, QD (AT 25 0/7 WEEKS)
     Route: 064
  9. NIFEDIPINE. [Suspect]
     Active Substance: NIFEDIPINE
     Indication: FOETAL EXPOSURE DURING PREGNANCY
     Dosage: 40 MG, QD (20 MG TWO TIMES DAILY (BID))
     Route: 064

REACTIONS (6)
  - Neonatal hyponatraemia [Recovered/Resolved]
  - Premature baby [Recovered/Resolved]
  - Hypoglycaemia neonatal [Recovered/Resolved]
  - Foetal exposure during pregnancy [Recovered/Resolved]
  - Cortisol increased [Recovered/Resolved]
  - Ultrasound uterus abnormal [Recovered/Resolved]
